FAERS Safety Report 13763761 (Version 2)
Quarter: 2017Q3

REPORT INFORMATION
  Report Type: Spontaneous
  Country: US (occurrence: US)
  Receive Date: 20170718
  Receipt Date: 20170724
  Transmission Date: 20171127
  Serious: Yes (Other)
  Sender: FDA-Public Use
  Company Number: US-JNJFOC-20170711618

PATIENT
  Age: 62 Year
  Sex: Female

DRUGS (1)
  1. LEVAQUIN [Suspect]
     Active Substance: LEVOFLOXACIN
     Indication: UROSEPSIS
     Route: 048

REACTIONS (4)
  - Carpal tunnel syndrome [Unknown]
  - Polyneuropathy [Unknown]
  - Tendon injury [Unknown]
  - Ligament disorder [Unknown]

NARRATIVE: CASE EVENT DATE: 201001
